FAERS Safety Report 13184632 (Version 1)
Quarter: 2017Q1

REPORT INFORMATION
  Report Type: Spontaneous
  Country: NL (occurrence: NL)
  Receive Date: 20170203
  Receipt Date: 20170203
  Transmission Date: 20170428
  Serious: Yes (Other)
  Sender: FDA-Public Use
  Company Number: NL-TEVA-735667ACC

PATIENT
  Age: 46 Year
  Sex: Female

DRUGS (2)
  1. METHOTREXATE (METHOTREXATE SODIUM) [Suspect]
     Active Substance: METHOTREXATE SODIUM
     Indication: RHEUMATOID ARTHRITIS
     Route: 048
     Dates: start: 19991221, end: 20161121
  2. FOLIUMZUUR [Concomitant]
     Active Substance: FOLIC ACID
     Route: 048
     Dates: start: 20080301, end: 20111011

REACTIONS (1)
  - Pulmonary granuloma [Recovered/Resolved]

NARRATIVE: CASE EVENT DATE: 20110921
